FAERS Safety Report 6937674-7 (Version None)
Quarter: 2010Q3

REPORT INFORMATION
  Report Type: 
  Country: None (occurrence: None)
  Receive Date: 20100820
  Receipt Date: 20100820
  Transmission Date: 20110219
  Serious: Yes (Other)
  Sender: FDA-Public Use
  Company Number: None

PATIENT
  Age: 39 Year
  Sex: Female
  Weight: 63.5036 kg

DRUGS (1)
  1. NUVARING [Suspect]
     Indication: CONTRACEPTION
     Dosage: 1 RING MONTHLY VAG
     Route: 067
     Dates: start: 20060101, end: 20100315

REACTIONS (5)
  - ANGER [None]
  - DEPRESSED MOOD [None]
  - MENTAL DISORDER [None]
  - MOOD SWINGS [None]
  - PARTNER STRESS [None]
